FAERS Safety Report 19115943 (Version 20)
Quarter: 2021Q4

REPORT INFORMATION
  Report Type: Report from Study
  Country: BR (occurrence: BR)
  Receive Date: 20210409
  Receipt Date: 20211005
  Transmission Date: 20220303
  Serious: Yes (Death, Life-Threatening, Hospitalization, Disabling)
  Sender: FDA-Public Use
  Company Number: BR-ROCHE-2802847

PATIENT
  Age: 62 Year
  Sex: Female
  Weight: 64.8 kg

DRUGS (23)
  1. INVESTIGATIONAL PRODUCT [Suspect]
     Active Substance: INVESTIGATIONAL PRODUCT
     Indication: Malignant neoplasm of thymus
     Dosage: MOST RECENT DOSE (250 MG) (TOTAL VOLUME 50 ML) RECEIVED ON 29/MAR/2021, FROM 01:55 PM TO 02:55 PM AN
     Route: 041
     Dates: start: 20210322
  2. ATEZOLIZUMAB [Suspect]
     Active Substance: ATEZOLIZUMAB
     Indication: Malignant neoplasm of thymus
     Dosage: MOST RECENT DOSE (1200 MG) (TOTAL VOLUME 270 ML) RECEIVED ON 22/MAR/2021, FROM 01:35 PM TO 02:20 PM
     Route: 041
     Dates: start: 20210322
  3. PREDNISONE [Suspect]
     Active Substance: PREDNISONE
     Indication: Product used for unknown indication
     Route: 065
  4. METOCLOPRAMIDE [Concomitant]
     Active Substance: METOCLOPRAMIDE
     Indication: Nausea
     Dates: start: 20210325, end: 20210328
  5. FUROSEMIDE [Concomitant]
     Active Substance: FUROSEMIDE
     Indication: Hypertension
     Dates: start: 2014, end: 20210412
  6. AMLODIPINE [Concomitant]
     Active Substance: AMLODIPINE BESYLATE
     Indication: Hypertension
     Dates: start: 2017, end: 20210402
  7. ENALAPRIL [Concomitant]
     Active Substance: ENALAPRIL
     Indication: Hypertension
     Dates: start: 2016, end: 20210402
  8. METOPROLOL [Concomitant]
     Active Substance: METOPROLOL
     Indication: Hypertension
     Dates: start: 2018, end: 20210610
  9. CLONAZEPAM [Concomitant]
     Active Substance: CLONAZEPAM
     Indication: Insomnia
     Dates: start: 2015, end: 20210610
  10. FLUOXETINE [Concomitant]
     Active Substance: FLUOXETINE HYDROCHLORIDE
     Indication: Depression
     Dates: start: 2015, end: 20210610
  11. OMEPRAZOLE [Concomitant]
     Active Substance: OMEPRAZOLE
     Indication: Dyspepsia
     Dates: start: 2015
  12. LORATADINE [Concomitant]
     Active Substance: LORATADINE
     Indication: Cough
     Dates: start: 20210325, end: 20210328
  13. SALINE [Concomitant]
     Active Substance: SODIUM CHLORIDE
     Indication: Tumour lysis syndrome
     Dates: start: 20210405, end: 20210407
  14. SALINE [Concomitant]
     Active Substance: SODIUM CHLORIDE
     Indication: Diabetes mellitus
     Dates: start: 20210602, end: 20210602
  15. SALINE [Concomitant]
     Active Substance: SODIUM CHLORIDE
     Dosage: 150 ML/H
     Dates: start: 20210508, end: 20210511
  16. ALLOPURINOL [Concomitant]
     Active Substance: ALLOPURINOL
     Indication: Tumour lysis syndrome
     Dates: start: 20210405, end: 20210407
  17. ALLOPURINOL [Concomitant]
     Active Substance: ALLOPURINOL
     Dates: start: 20210508, end: 20210509
  18. ALLOPURINOL [Concomitant]
     Active Substance: ALLOPURINOL
     Dates: start: 20210510, end: 20210518
  19. COVID-19 VACCINE [Concomitant]
     Indication: COVID-19
     Dates: start: 20210419, end: 20210419
  20. INSULIN NOS [Concomitant]
     Active Substance: INSULIN NOS
     Indication: Diabetes mellitus
     Dosage: 6 IU/L
     Dates: start: 20210602, end: 20210602
  21. CODEINE [Concomitant]
     Active Substance: CODEINE
     Indication: Tumour inflammation
     Dates: start: 20210402
  22. AMOXICILLIN\CLAVULANIC ACID [Concomitant]
     Active Substance: AMOXICILLIN\CLAVULANIC ACID
     Indication: Sinusitis
     Dates: start: 20210514, end: 20210524
  23. ENOXAPARIN [Concomitant]
     Active Substance: ENOXAPARIN
     Indication: Vena cava thrombosis
     Dates: start: 20210605, end: 20210617

REACTIONS (7)
  - Septic shock [Fatal]
  - Intestinal haemorrhage [Not Recovered/Not Resolved]
  - Tumour inflammation [Recovered/Resolved]
  - Pneumonitis [Not Recovered/Not Resolved]
  - Hypertriglyceridaemia [Not Recovered/Not Resolved]
  - Blood glucose increased [Recovered/Resolved]
  - Respiratory tract infection [Not Recovered/Not Resolved]

NARRATIVE: CASE EVENT DATE: 20210330
